FAERS Safety Report 8765293 (Version 5)
Quarter: 2013Q1

REPORT INFORMATION
  Report Type: Report from Study
  Country: JP (occurrence: JP)
  Receive Date: 20120831
  Receipt Date: 20130208
  Transmission Date: 20140127
  Serious: Yes (Hospitalization, Other)
  Sender: FDA-Public Use
  Company Number: JP-009507513-1208JPN011005

PATIENT
  Age: 71 Year
  Sex: Female
  Weight: 47 kg

DRUGS (34)
  1. PEGINTRON [Suspect]
     Indication: CHRONIC HEPATITIS C
     Dosage: 1.5 MICROGRAM PER KILOGRAM, QW
     Route: 058
     Dates: start: 20120508, end: 20120730
  2. REBETOL [Suspect]
     Indication: CHRONIC HEPATITIS C
     Dosage: 400 MG, QD
     Route: 048
     Dates: start: 20120508, end: 20120528
  3. REBETOL [Suspect]
     Dosage: 200MG, QD
     Route: 048
     Dates: start: 20120529, end: 20120730
  4. TELAVIC [Suspect]
     Indication: CHRONIC HEPATITIS C
     Dosage: 1500 MG, QD
     Route: 048
     Dates: start: 20120508, end: 20120618
  5. TELAVIC [Suspect]
     Dosage: 1000 MG, QD
     Route: 048
     Dates: start: 20120619, end: 20120625
  6. TELAVIC [Suspect]
     Dosage: 1500 MG, QD
     Route: 048
     Dates: start: 20120626, end: 20120716
  7. TELAVIC [Suspect]
     Dosage: 1250 MG, QD
     Route: 048
     Dates: start: 20120717, end: 20120717
  8. TELAVIC [Suspect]
     Dosage: 1000 MG, QD
     Route: 048
     Dates: start: 20120718, end: 20120723
  9. TELAVIC [Suspect]
     Dosage: 1500 UNK, UNK
     Route: 048
     Dates: start: 20120724, end: 20120730
  10. PURSENNID (SENNOSIDES) [Concomitant]
     Indication: CONSTIPATION
     Dosage: 24 MG, QD
     Route: 048
     Dates: start: 20120803, end: 20120812
  11. KARY UNI [Concomitant]
     Indication: CATARACT
     Dosage: Q.S./DAY; FORMULATION: EED
     Route: 047
     Dates: end: 20120812
  12. MERISLON [Concomitant]
     Indication: DIZZINESS
     Dosage: 18 MG, QD; FORMULATION: POR
     Route: 048
     Dates: start: 20120806, end: 20120812
  13. MERISLON [Concomitant]
     Dosage: 6MG QD
     Route: 048
  14. MERISLON [Concomitant]
     Dosage: 6 MG, QD
     Route: 048
     Dates: start: 20121011
  15. CEPHADOL [Concomitant]
     Indication: DIZZINESS
     Dosage: 75 MG, QD; FORMULATION: POR
     Route: 048
     Dates: start: 20120806, end: 20120812
  16. CEPHADOL [Concomitant]
     Dosage: 25 MG, QD
     Route: 048
     Dates: start: 20121011
  17. CEPHADOL [Concomitant]
     Dosage: 25 MG, QD
     Route: 048
  18. EXCELASE [Concomitant]
     Indication: CONSTIPATION
     Dosage: 3 DF, QD
     Route: 048
     Dates: start: 20120806, end: 20120812
  19. EXCELASE [Concomitant]
     Dosage: 3 DF, QD
     Route: 048
     Dates: start: 20121011
  20. EXCELASE [Concomitant]
     Dosage: 1 UNK, UNK
     Route: 048
  21. MUCOSOLVAN [Concomitant]
     Dosage: 45 MG, QD; FORMULATION: POR
     Route: 048
     Dates: start: 20120806, end: 20120812
  22. MUCOSOLVAN [Concomitant]
     Dosage: 45 MG, QD; FORMULATION: POR
     Route: 048
     Dates: start: 20121011
  23. MUCOSOLVAN [Concomitant]
     Dosage: 15MG DQD
     Route: 048
  24. BENZALIN [Concomitant]
     Indication: INSOMNIA
     Dosage: 10 MG, QD; FORMULATION: POR
     Route: 048
     Dates: end: 20120520
  25. BENZALIN [Concomitant]
     Dosage: 5 MG, QD
     Route: 048
     Dates: start: 20120521, end: 20120806
  26. LOXOPROFEN [Concomitant]
     Indication: PROPHYLAXIS
     Dosage: 60 MG, QD
     Route: 048
     Dates: start: 20120508, end: 20120604
  27. LOXOPROFEN [Concomitant]
     Dosage: 120 MG, QD; FORMULATION: POR
     Route: 048
     Dates: start: 20120605, end: 20120809
  28. LOXOPROFEN [Concomitant]
     Dosage: 120 MG QD
     Route: 048
     Dates: end: 20120903
  29. LOXOPROFEN [Concomitant]
     Dosage: 60 MG QD
     Route: 048
     Dates: start: 20120904, end: 20120919
  30. MUCOSTA [Concomitant]
     Indication: PROPHYLAXIS
     Dosage: 100 MG, QD; FORMULATION: POR
     Route: 048
     Dates: start: 20120508, end: 20120604
  31. MUCOSTA [Concomitant]
     Dosage: 200 MG, QD FORMULATION POR
     Route: 048
     Dates: start: 20120605, end: 20120809
  32. MUCOSTA [Concomitant]
     Dosage: 200 MG QD
     Route: 048
     Dates: end: 20120903
  33. MUCOSTA [Concomitant]
     Dosage: 100 MG, QD
     Route: 048
     Dates: start: 20120904, end: 20120919
  34. MUCOSTA [Concomitant]
     Dosage: 200 MG, QD
     Route: 048
     Dates: start: 20120920

REACTIONS (7)
  - Red blood cell count decreased [Not Recovered/Not Resolved]
  - Haemoglobin decreased [Not Recovered/Not Resolved]
  - Subcutaneous abscess [Unknown]
  - Pyrexia [Recovered/Resolved]
  - Blood pressure decreased [Recovered/Resolved]
  - Necrotising fasciitis [Recovered/Resolved]
  - Gas gangrene [Recovered/Resolved]
